FAERS Safety Report 10048010 (Version 1)
Quarter: 2014Q1

REPORT INFORMATION
  Report Type: Spontaneous
  Country: GB (occurrence: GB)
  Receive Date: 20140331
  Receipt Date: 20140331
  Transmission Date: 20141002
  Serious: Yes (Other)
  Sender: FDA-Public Use
  Company Number: PHHY2014GB034625

PATIENT
  Age: 71 Year
  Sex: Male
  Weight: 87 kg

DRUGS (21)
  1. CO-AMOXICLAV [Suspect]
     Dates: start: 20140304
  2. ALLOPURINOL [Concomitant]
     Dates: start: 20131112
  3. ASPIRIN [Concomitant]
     Dates: start: 20131112
  4. CALCICHEW D3 [Concomitant]
     Dates: start: 20131119, end: 20131219
  5. CITALOPRAM [Concomitant]
     Dates: start: 20131112
  6. DIGOXIN [Concomitant]
     Dates: start: 20131112
  7. DOXYCYCLINE [Concomitant]
     Dates: start: 20131206, end: 20140225
  8. FERROUS FUMARATE [Concomitant]
     Dates: start: 20131112, end: 20131210
  9. FLUTICASONE [Concomitant]
     Dates: start: 20131024, end: 20140107
  10. FUROSEMIDE [Concomitant]
     Dates: start: 20131112
  11. GAVISCON ADVANCE [Concomitant]
     Dates: start: 20131202, end: 20140205
  12. GLYCERYL TRINITRATE [Concomitant]
     Dates: start: 20131112, end: 20140107
  13. IPRATROPIUM BROMIDE [Concomitant]
     Dates: start: 20131113
  14. KAPAKE [Concomitant]
     Dates: start: 20131112
  15. LANSOPRAZOLE [Concomitant]
     Dates: start: 20131112
  16. NEFOPAM [Concomitant]
     Dates: start: 20131119, end: 20140205
  17. NICORANDIL [Concomitant]
     Dates: start: 20131112, end: 20140223
  18. PREDNISOLONE [Concomitant]
     Dates: start: 20131217
  19. SIMVASTATIN [Concomitant]
     Dates: start: 20131112
  20. TILDIEM [Concomitant]
     Dates: start: 20131112
  21. ZOLPIDEM [Concomitant]
     Dates: start: 20131112

REACTIONS (2)
  - Malaise [Recovering/Resolving]
  - Rash [Recovering/Resolving]
